FAERS Safety Report 22538545 (Version 1)
Quarter: 2023Q2

REPORT INFORMATION
  Report Type: Spontaneous
  Country: US (occurrence: US)
  Receive Date: 20230609
  Receipt Date: 20230609
  Transmission Date: 20230722
  Serious: Yes (Hospitalization)
  Sender: FDA-Public Use
  Company Number: US-drreddys-SPO/USA/23/0166379

PATIENT
  Age: 16 Year
  Sex: Female

DRUGS (2)
  1. ACCUTANE [Suspect]
     Active Substance: ISOTRETINOIN
     Indication: Product used for unknown indication
     Dosage: RMA ISSUE DATE: 25 JANUARY 2022 02:59:52 PM, 25 AUGUST 2022 02:42:24 PM, 28 SEPTEMBER 2022 10:26:34
  2. ACCUTANE [Suspect]
     Active Substance: ISOTRETINOIN
     Dosage: RMA ISSUE DATE: 08 MARCH 2023 12:14:49 PM

REACTIONS (1)
  - Surgery [Unknown]
